FAERS Safety Report 7412722-9 (Version None)
Quarter: 2011Q2

REPORT INFORMATION
  Report Type: 
  Country: None (occurrence: None)
  Receive Date: 20110413
  Receipt Date: 20110407
  Transmission Date: 20111010
  Serious: Yes (Hospitalization)
  Sender: FDA-Public Use
  Company Number: A0886363A

PATIENT
  Age: 50 Year
  Sex: Female
  Weight: 115.9 kg

DRUGS (1)
  1. ROSIGLITAZONE MALEATE [Suspect]
     Route: 048

REACTIONS (6)
  - DYSPNOEA [None]
  - CARDIAC VALVE DISEASE [None]
  - STOMACH MASS [None]
  - EYE HAEMORRHAGE [None]
  - CEREBROVASCULAR ACCIDENT [None]
  - ATRIAL FIBRILLATION [None]
